FAERS Safety Report 6118775-2 (Version None)
Quarter: 2009Q1

REPORT INFORMATION
  Report Type: 
  Country: None (occurrence: None)
  Receive Date: 20090314
  Receipt Date: 20090226
  Transmission Date: 20090719
  Serious: No
  Sender: FDA-Public Use
  Company Number: US-ABBOTT-09P-163-0559786-00

PATIENT
  Sex: Female
  Weight: 88.076 kg

DRUGS (9)
  1. HUMIRA [Suspect]
     Indication: ANKYLOSING SPONDYLITIS
     Dates: start: 20090209
  2. OXYCODONE HCL [Concomitant]
     Indication: PAIN
  3. CYMBALTA [Concomitant]
     Indication: DRUG USE FOR UNKNOWN INDICATION
  4. ZYRTEC [Concomitant]
     Indication: DRUG USE FOR UNKNOWN INDICATION
  5. MAXZIDE [Concomitant]
     Indication: MIGRAINE
     Dosage: 37.5/25 MG
  6. TOPAMAX [Concomitant]
     Indication: MIGRAINE
  7. CLIMARIL [Concomitant]
     Indication: BACK PAIN
  8. SYNTHROID [Concomitant]
     Indication: DRUG USE FOR UNKNOWN INDICATION
  9. YAZ [Concomitant]
     Indication: DRUG USE FOR UNKNOWN INDICATION

REACTIONS (2)
  - NAUSEA [None]
  - VERTIGO [None]
